FAERS Safety Report 5212264-5 (Version None)
Quarter: 2007Q1

REPORT INFORMATION
  Report Type: 
  Country: None (occurrence: None)
  Receive Date: 20070118
  Receipt Date: 20070115
  Transmission Date: 20070707
  Serious: Yes (Death)
  Sender: FDA-Public Use
  Company Number: DE-ROXANE LABORATORIES, INC-2007-BP-00570RO

PATIENT
  Age: 42 Year
  Sex: Female

DRUGS (2)
  1. CITALOPRAM HYDROBROMIDE [Suspect]
     Route: 048
  2. MOCLOBEMIDE [Suspect]
     Route: 048

REACTIONS (3)
  - DRUG ABUSER [None]
  - SEROTONIN SYNDROME [None]
  - SUICIDE ATTEMPT [None]
